FAERS Safety Report 7819258-1 (Version None)
Quarter: 2011Q4

REPORT INFORMATION
  Report Type: 
  Country: None (occurrence: None)
  Receive Date: 20111018
  Receipt Date: 20100914
  Transmission Date: 20120403
  Serious: No
  Sender: FDA-Public Use
  Company Number: US-ASTRAZENECA-2010SE43065

PATIENT
  Age: 65 Year
  Sex: Female
  Weight: 86.2 kg

DRUGS (5)
  1. PREDNISONE [Concomitant]
  2. SYMBICORT [Suspect]
     Indication: CHRONIC OBSTRUCTIVE PULMONARY DISEASE
     Dosage: 320 MCG TWO TIMES A DAY
     Route: 055
     Dates: start: 20100913
  3. POTASSIUM [Concomitant]
  4. CALCIUM CARBONATE [Concomitant]
  5. KADIAN [Concomitant]
     Indication: BACK PAIN

REACTIONS (1)
  - ABDOMINAL PAIN UPPER [None]
